FAERS Safety Report 8289192-4 (Version None)
Quarter: 2012Q2

REPORT INFORMATION
  Report Type: 
  Country: None (occurrence: None)
  Receive Date: 20120417
  Receipt Date: 20120411
  Transmission Date: 20120825
  Serious: Yes (Hospitalization, Other)
  Sender: FDA-Public Use
  Company Number: PHHY2012FR021135

PATIENT
  Sex: Female

DRUGS (6)
  1. RAMIPRIL [Suspect]
     Indication: HYPERTENSION
     Dosage: 5 MG, QD
     Dates: end: 20120107
  2. FENOFIBRATE [Concomitant]
  3. TRAMADOL HCL [Concomitant]
     Indication: PAIN
     Dosage: 5 MG, QD
     Dates: end: 20120107
  4. RASILEZ [Suspect]
     Indication: HYPERTENSION
     Dosage: 150 MG, QD
     Dates: start: 20110922, end: 20120107
  5. FLEXEA [Suspect]
     Indication: OSTEOARTHRITIS
     Dosage: 1 DF, UNK
     Dates: start: 20111219, end: 20120106
  6. ISORBIDE [Concomitant]
     Dosage: 40 MG, QD
     Dates: end: 20120107

REACTIONS (17)
  - ABDOMINAL PAIN [None]
  - HYPOTENSION [None]
  - TYPE 2 DIABETES MELLITUS [None]
  - VITAMIN B12 DEFICIENCY [None]
  - OLIGURIA [None]
  - HYPERCREATININAEMIA [None]
  - NORMOCHROMIC NORMOCYTIC ANAEMIA [None]
  - HYPERTRIGLYCERIDAEMIA [None]
  - HAEMORRHAGIC URTICARIA [None]
  - HEART RATE DECREASED [None]
  - RENAL FAILURE ACUTE [None]
  - URINE OUTPUT DECREASED [None]
  - HYPOVOLAEMIC SHOCK [None]
  - ANGIOEDEMA [None]
  - PYELONEPHRITIS [None]
  - PYREXIA [None]
  - SKIN OEDEMA [None]
